FAERS Safety Report 24541374 (Version 1)
Quarter: 2024Q4

REPORT INFORMATION
  Report Type: Spontaneous
  Country: US (occurrence: None)
  Receive Date: 20241023
  Receipt Date: 20241023
  Transmission Date: 20250114
  Serious: Yes (Other)
  Sender: Public
  Company Number: None

PATIENT
  Age: 38 Year
  Sex: Female
  Weight: 54 kg

DRUGS (2)
  1. TRIAMCINOLONE [Suspect]
     Active Substance: TRIAMCINOLONE
     Indication: Seasonal allergy
     Route: 030
  2. PROZAC [Concomitant]
     Active Substance: FLUOXETINE HYDROCHLORIDE

REACTIONS (7)
  - Injection site pain [None]
  - Injection site bruising [None]
  - Myalgia [None]
  - Asthenia [None]
  - Atrophy [None]
  - Loss of personal independence in daily activities [None]
  - Sleep disorder [None]

NARRATIVE: CASE EVENT DATE: 20230608
